FAERS Safety Report 7980299-5 (Version None)
Quarter: 2011Q4

REPORT INFORMATION
  Report Type: 
  Country: None (occurrence: None)
  Receive Date: 20111212
  Receipt Date: 20111128
  Transmission Date: 20120403
  Serious: Yes (Other)
  Sender: FDA-Public Use
  Company Number: 1000025773

PATIENT
  Age: 35 Year
  Sex: Female

DRUGS (4)
  1. VIIBRYD [Suspect]
     Indication: POSTPARTUM DEPRESSION
     Dates: start: 20110901
  2. LOESTRIN (ANOVLAR) (ANOVLAR) [Concomitant]
  3. SYNTHROID (LEVOTHYROXINE SODIUM) (LEVOTHYROXINE SODIUM) [Concomitant]
  4. VALTREX (VALACLOVIR HYDROCHLORIDE) (VALACICLOVIR HYDROCHLORIDE) [Concomitant]

REACTIONS (2)
  - VISUAL IMPAIRMENT [None]
  - OFF LABEL USE [None]
